FAERS Safety Report 26120216 (Version 1)
Quarter: 2025Q4

REPORT INFORMATION
  Report Type: Spontaneous
  Country: CN (occurrence: CN)
  Receive Date: 20251204
  Receipt Date: 20251204
  Transmission Date: 20260117
  Serious: Yes (Other)
  Sender: GE HEALTHCARE
  Company Number: None

PATIENT
  Age: 74 Year
  Sex: Female
  Weight: 59 kg

DRUGS (4)
  1. OMNIPAQUE [Suspect]
     Active Substance: IOHEXOL
     Indication: Imaging procedure
     Dosage: 35 GM, TOTAL
     Route: 042
     Dates: start: 20250915
  2. SODIUM CHLORIDE [Suspect]
     Active Substance: SODIUM CHLORIDE
     Indication: Imaging procedure
     Dosage: 250 ML, QD
     Route: 042
     Dates: start: 20250915
  3. SODIUM CHLORIDE [Suspect]
     Active Substance: SODIUM CHLORIDE
     Dosage: 250 ML, QD
     Route: 041
     Dates: start: 20250916
  4. GADOPENTETATE DIMEGLUMINE [Suspect]
     Active Substance: GADOPENTETATE DIMEGLUMINE
     Indication: Imaging procedure
     Dosage: 7.04 GM, QD
     Route: 042
     Dates: start: 20250916

REACTIONS (2)
  - Transaminases increased [Recovered/Resolved]
  - Condition aggravated [Recovered/Resolved]

NARRATIVE: CASE EVENT DATE: 20250919
